FAERS Safety Report 8125894-8 (Version None)
Quarter: 2012Q1

REPORT INFORMATION
  Report Type: 
  Country: None (occurrence: None)
  Receive Date: 20120209
  Receipt Date: 20120130
  Transmission Date: 20120608
  Serious: Yes (Hospitalization, Other)
  Sender: FDA-Public Use
  Company Number: JP-JNJFOC-20110510255

PATIENT
  Sex: Female
  Weight: 57 kg

DRUGS (13)
  1. ADALAT CC [Concomitant]
     Indication: HYPERTENSION
     Route: 048
     Dates: end: 20110909
  2. OLOPATADINE HCL [Concomitant]
     Indication: DRUG ERUPTION
     Route: 048
  3. POLARAMINE [Concomitant]
     Indication: DRUG ERUPTION
     Route: 048
  4. REMICADE [Suspect]
     Dosage: THIRD DOSE
     Route: 042
     Dates: start: 20110404
  5. RHEUMATREX [Suspect]
     Indication: RHEUMATOID ARTHRITIS
     Route: 048
  6. ASPIRIN [Concomitant]
     Indication: ANGINA PECTORIS
     Route: 048
  7. LANSOPRAZOLE [Concomitant]
     Indication: GASTRIC ULCER
     Route: 048
  8. REMICADE [Suspect]
     Indication: RHEUMATOID ARTHRITIS
     Route: 042
     Dates: start: 20110224
  9. PLAVIX [Concomitant]
     Indication: ACUTE CORONARY SYNDROME
     Route: 048
     Dates: end: 20110702
  10. CYTOTEC [Concomitant]
     Indication: GASTRIC ULCER
     Dosage: DAILY DOSE 400 DF
     Route: 048
  11. CELECOXIB [Concomitant]
     Indication: RHEUMATOID ARTHRITIS
     Route: 048
     Dates: end: 20110826
  12. OLMESARTAN MEDOXOMIL [Concomitant]
     Indication: HYPERTENSION
     Route: 048
     Dates: end: 20110702
  13. CARVEDILOL [Concomitant]
     Indication: HYPERTENSION
     Route: 048

REACTIONS (1)
  - DISSEMINATED TUBERCULOSIS [None]
